FAERS Safety Report 4268631-X (Version None)
Quarter: 2004Q1

REPORT INFORMATION
  Report Type: 
  Country: None (occurrence: None)
  Receive Date: 20040112
  Receipt Date: 20030611
  Transmission Date: 20041129
  Serious: Yes (Hospitalization, Disabling, Other)
  Sender: FDA-Public Use
  Company Number: WAES 0306USA01498

PATIENT
  Age: 2 Year
  Sex: Female

DRUGS (6)
  1. ALLOPURINOL [Suspect]
     Indication: ACUTE LYMPHOCYTIC LEUKAEMIA
  2. ELSPAR [Suspect]
     Indication: ACUTE LYMPHOCYTIC LEUKAEMIA
     Route: 041
     Dates: start: 19950201
  3. DAUNORUBICIN [Suspect]
     Indication: ACUTE LYMPHOCYTIC LEUKAEMIA
  4. DECADRON TABLETS [Suspect]
     Indication: ACUTE LYMPHOCYTIC LEUKAEMIA
     Route: 048
  5. METHOTREXATE [Suspect]
     Indication: ACUTE LYMPHOCYTIC LEUKAEMIA
  6. VINCRISTINE SULFATE [Suspect]
     Indication: ACUTE LYMPHOCYTIC LEUKAEMIA
     Route: 042

REACTIONS (19)
  - BRAIN DAMAGE [None]
  - BURN INFECTION [None]
  - CAUSTIC INJURY [None]
  - CONSTIPATION [None]
  - DISORIENTATION [None]
  - DRUG TOXICITY [None]
  - FATIGUE [None]
  - HYDRONEPHROSIS [None]
  - HYDROURETER [None]
  - INJECTION SITE PAIN [None]
  - INJECTION SITE SWELLING [None]
  - INJURY [None]
  - INSOMNIA [None]
  - IRRITABILITY [None]
  - MEDICATION ERROR [None]
  - NEUTROPENIA [None]
  - PYREXIA [None]
  - STARING [None]
  - TUMOUR LYSIS SYNDROME [None]
